FAERS Safety Report 9209311 (Version 1)
Quarter: 2013Q2

REPORT INFORMATION
  Report Type: Spontaneous
  Country: US (occurrence: None)
  Receive Date: 20130403
  Receipt Date: 20130403
  Transmission Date: 20140414
  Serious: Yes (Hospitalization, Other)
  Sender: FDA-Public Use
  Company Number: None

PATIENT
  Age: 77 Year
  Sex: Female
  Weight: 95.26 kg

DRUGS (1)
  1. BACLOFEN [Suspect]
     Dosage: 20 MG.   1  AT BEDTIME  ORAL
     Route: 048
     Dates: start: 20130111, end: 20130112

REACTIONS (4)
  - Memory impairment [None]
  - Confusional state [None]
  - Hallucination [None]
  - Insomnia [None]
